FAERS Safety Report 5472386-0 (Version None)
Quarter: 2007Q3

REPORT INFORMATION
  Report Type: 
  Country: None (occurrence: None)
  Receive Date: 20070927
  Receipt Date: 20070917
  Transmission Date: 20080115
  Serious: Yes (Hospitalization, Other)
  Sender: FDA-Public Use
  Company Number: 07H-163-0313216-00

PATIENT
  Age: 74 Year
  Sex: Female

DRUGS (3)
  1. DOBUTAMINE HCL [Suspect]
     Indication: SCAN MYOCARDIAL PERFUSION
     Dosage: 2.5 MCG/KG/MIN
  2. ERGONOVINE MALEATE [Concomitant]
  3. TECHNETIUM 99M SESTAMIBI (TECHNETIUM (99M TC) SESTAMIBI) [Concomitant]

REACTIONS (5)
  - ARTERIOSPASM CORONARY [None]
  - CARDIAC PROCEDURE COMPLICATION [None]
  - LEFT VENTRICULAR HYPERTROPHY [None]
  - MYOCARDIAL INFARCTION [None]
  - VENTRICULAR TACHYCARDIA [None]
